FAERS Safety Report 5312534-6 (Version None)
Quarter: 2007Q2

REPORT INFORMATION
  Report Type: 
  Country: None (occurrence: None)
  Receive Date: 20070430
  Receipt Date: 20070322
  Transmission Date: 20071010
  Serious: No
  Sender: FDA-Public Use
  Company Number: 2007UW01281

PATIENT
  Age: 50 Year
  Sex: Female

DRUGS (1)
  1. NEXIUM [Suspect]
     Indication: DYSPEPSIA
     Route: 048
     Dates: start: 20070110

REACTIONS (9)
  - ABDOMINAL DISTENSION [None]
  - CONSTIPATION [None]
  - EYE DISORDER [None]
  - HAIR COLOUR CHANGES [None]
  - HUNGER [None]
  - ILL-DEFINED DISORDER [None]
  - PALLOR [None]
  - PRURITUS [None]
  - SOMNOLENCE [None]
